FAERS Safety Report 8065959-2 (Version None)
Quarter: 2011Q4

REPORT INFORMATION
  Report Type: 
  Country: None (occurrence: None)
  Receive Date: 20111221
  Receipt Date: 20110107
  Transmission Date: 20120403
  Serious: Yes (Hospitalization, Other)
  Sender: FDA-Public Use
  Company Number: PHHY2010US86335

PATIENT
  Age: 83 Year
  Sex: Female

DRUGS (5)
  1. BLOOD TESTS, AUXILIARY PRODUCTS (NO INGREDIENTS/SUBSTANCES) [Concomitant]
  2. EXJADE [Suspect]
     Indication: MYELODYSPLASTIC SYNDROME
     Dosage: 1250 MG, ORAL
     Route: 048
  3. EXJADE [Suspect]
     Indication: IRON OVERLOAD
     Dosage: 1250 MG, ORAL
     Route: 048
  4. PROTONIX [Concomitant]
  5. V [Concomitant]

REACTIONS (4)
  - GASTRIC ULCER [None]
  - ASTHENIA [None]
  - GASTROINTESTINAL HAEMORRHAGE [None]
  - GAIT DISTURBANCE [None]
